FAERS Safety Report 8987185 (Version 2)
Quarter: 2013Q2

REPORT INFORMATION
  Report Type: Spontaneous
  Country: US (occurrence: US)
  Receive Date: 20121227
  Receipt Date: 20130503
  Transmission Date: 20140414
  Serious: Yes (Other)
  Sender: FDA-Public Use
  Company Number: US-BAYER-2012-135275

PATIENT
  Age: 32 Year
  Sex: Female
  Weight: 69.84 kg

DRUGS (1)
  1. YAZ [Suspect]

REACTIONS (8)
  - Deep vein thrombosis [Recovering/Resolving]
  - Pain [None]
  - Injury [Recovering/Resolving]
  - General physical health deterioration [Recovering/Resolving]
  - Anxiety [None]
  - Emotional distress [None]
  - Pain [Recovering/Resolving]
  - Pain in extremity [Recovering/Resolving]
